FAERS Safety Report 19233068 (Version 2)
Quarter: 2021Q2

REPORT INFORMATION
  Report Type: Report from Study
  Country: CA (occurrence: CA)
  Receive Date: 20210507
  Receipt Date: 20210519
  Transmission Date: 20210717
  Serious: Yes (Other)
  Sender: FDA-Public Use
  Company Number: CA-BEH-2021131492

PATIENT
  Age: 2 Year
  Sex: Male
  Weight: 7.26 kg

DRUGS (2)
  1. HIZENTRA [Suspect]
     Active Substance: HUMAN IMMUNOGLOBULIN G
     Dosage: 1 GRAM, QW
     Route: 058
     Dates: start: 20210422
  2. HIZENTRA [Suspect]
     Active Substance: HUMAN IMMUNOGLOBULIN G
     Indication: PRIMARY IMMUNODEFICIENCY SYNDROME
     Dosage: 1 GRAM, QW
     Route: 058
     Dates: start: 20191118

REACTIONS (5)
  - Alanine aminotransferase increased [Unknown]
  - Blood creatine phosphokinase increased [Unknown]
  - No adverse event [Unknown]
  - Wrong technique in product usage process [Unknown]
  - Muscle injury [Unknown]

NARRATIVE: CASE EVENT DATE: 202104
